FAERS Safety Report 19364739 (Version 1)
Quarter: 2021Q2

REPORT INFORMATION
  Report Type: Spontaneous
  Country: US (occurrence: US)
  Receive Date: 20210602
  Receipt Date: 20210602
  Transmission Date: 20210717
  Serious: No
  Sender: FDA-Public Use
  Company Number: US-BAUSCH-BL-2021-015332

PATIENT
  Age: 71 Year
  Sex: Male

DRUGS (3)
  1. MYSOLINE [Suspect]
     Active Substance: PRIMIDONE
     Indication: CEREBROVASCULAR ACCIDENT
     Dosage: ONE?HALF TABLET
     Route: 048
     Dates: start: 20210427
  2. MYSOLINE [Suspect]
     Active Substance: PRIMIDONE
     Indication: PRODUCT USE IN UNAPPROVED INDICATION
  3. PROPRANOLOL [Concomitant]
     Active Substance: PROPRANOLOL HYDROCHLORIDE
     Indication: PRODUCT USED FOR UNKNOWN INDICATION
     Route: 065

REACTIONS (4)
  - Dizziness [Recovering/Resolving]
  - Gait disturbance [Recovering/Resolving]
  - Product use in unapproved indication [Unknown]
  - Somnolence [Recovering/Resolving]

NARRATIVE: CASE EVENT DATE: 20210427
